FAERS Safety Report 7461586-6 (Version None)
Quarter: 2011Q2

REPORT INFORMATION
  Report Type: 
  Country: None (occurrence: None)
  Receive Date: 20110428
  Receipt Date: 20110414
  Transmission Date: 20111010
  Serious: Yes (Life-Threatening, Hospitalization, Other)
  Sender: FDA-Public Use
  Company Number: 2007S1007467

PATIENT
  Age: 64 Year
  Sex: Female
  Weight: 64.9 kg

DRUGS (13)
  1. PREVACID [Concomitant]
  2. WELLBUTRIN [Concomitant]
  3. LISINOPRIL [Concomitant]
  4. LORAZEPAM [Concomitant]
  5. ALBUTEROL [Concomitant]
  6. PHOSPHOSODA FLAVOR NOT SPECIFIED [Suspect]
     Indication: COLONOSCOPY
     Dosage: ; PO
     Route: 048
     Dates: start: 20070307, end: 20070307
  7. LORATADINE [Concomitant]
  8. ATROVENT [Concomitant]
  9. ZYPREXA [Concomitant]
  10. ACTONEL [Concomitant]
  11. AMBIEN [Concomitant]
  12. ASPIRIN [Concomitant]
  13. CELEBREX [Concomitant]

REACTIONS (21)
  - PARAESTHESIA [None]
  - INFLUENZA LIKE ILLNESS [None]
  - RENAL FAILURE ACUTE [None]
  - HYPERPHOSPHATAEMIA [None]
  - URINARY TRACT INFECTION [None]
  - TOXICITY TO VARIOUS AGENTS [None]
  - NEPHROCALCINOSIS [None]
  - HYPOKALAEMIA [None]
  - UROSEPSIS [None]
  - HYPOCALCAEMIA [None]
  - RENAL ARTERIOSCLEROSIS [None]
  - ANAEMIA [None]
  - HYPOAESTHESIA [None]
  - DIABETIC NEUROPATHY [None]
  - TUBULOINTERSTITIAL NEPHRITIS [None]
  - HYPOMAGNESAEMIA [None]
  - DEHYDRATION [None]
  - THIRST [None]
  - RENAL TUBULAR NECROSIS [None]
  - RENAL FAILURE CHRONIC [None]
  - NEPHROSCLEROSIS [None]
